FAERS Safety Report 8245862-5 (Version None)
Quarter: 2012Q1

REPORT INFORMATION
  Report Type: 
  Country: None (occurrence: None)
  Receive Date: 20120328
  Receipt Date: 20120328
  Transmission Date: 20120608
  Serious: Yes (Hospitalization)
  Sender: FDA-Public Use
  Company Number: None

PATIENT
  Age: 62 Year
  Sex: Female
  Weight: 65.1 kg

DRUGS (3)
  1. PIOGLITAZONE [Suspect]
     Dosage: 45 MG QD ORAL
     Route: 048
     Dates: start: 20120308, end: 20120318
  2. CARBOPLATIN [Suspect]
     Indication: BONE DISORDER
     Dosage: 512 MG INTRAVENOUS
     Route: 042
     Dates: start: 20120308, end: 20120315
  3. CARBOPLATIN [Suspect]
     Indication: BREAST CANCER METASTATIC
     Dosage: 512 MG INTRAVENOUS
     Route: 042
     Dates: start: 20120308, end: 20120315

REACTIONS (8)
  - CONSTIPATION [None]
  - ASTHENIA [None]
  - PAIN [None]
  - CHEST PAIN [None]
  - NAUSEA [None]
  - ABDOMINAL DISCOMFORT [None]
  - HYPONATRAEMIA [None]
  - RECTAL HAEMORRHAGE [None]
